FAERS Safety Report 8150086-6 (Version None)
Quarter: 2012Q1

REPORT INFORMATION
  Report Type: 
  Country: None (occurrence: None)
  Receive Date: 20120220
  Receipt Date: 20120209
  Transmission Date: 20120608
  Serious: Yes (Hospitalization)
  Sender: FDA-Public Use
  Company Number: US-BIOGENIDEC-2011BI046843

PATIENT
  Age: 50 Year
  Sex: Female

DRUGS (4)
  1. DIAZEPAM [Concomitant]
  2. CELEXA [Concomitant]
  3. MILONTIN [Concomitant]
  4. TYSABRI [Suspect]
     Indication: MULTIPLE SCLEROSIS
     Route: 042
     Dates: start: 20110301

REACTIONS (9)
  - URINARY RETENTION [None]
  - NAUSEA [None]
  - VOMITING [None]
  - ESCHERICHIA URINARY TRACT INFECTION [None]
  - NEPHROLITHIASIS [None]
  - SENSATION OF HEAVINESS [None]
  - ESCHERICHIA BACTERAEMIA [None]
  - BODY TEMPERATURE INCREASED [None]
  - DIZZINESS [None]
